FAERS Safety Report 21715054 (Version 1)
Quarter: 2022Q4

REPORT INFORMATION
  Report Type: Spontaneous
  Country: CA (occurrence: None)
  Receive Date: 20221209
  Receipt Date: 20221209
  Transmission Date: 20230112
  Serious: Yes (Hospitalization)
  Sender: FDA-Public Use
  Company Number: None

PATIENT
  Age: 29 Year
  Sex: Female
  Weight: 58.5 kg

DRUGS (4)
  1. MONISTAT 7 [Suspect]
     Active Substance: MICONAZOLE NITRATE
     Indication: Fungal infection
     Dosage: OTHER QUANTITY : 7 SUPPOSITORY(IES);?FREQUENCY : AT BEDTIME;?
     Route: 067
     Dates: start: 20221205, end: 20221207
  2. IUD NOS [Concomitant]
     Active Substance: COPPER OR LEVONORGESTREL
  3. KYLINA [Concomitant]
  4. WOMEN^S MULTIVITAMIN [Concomitant]

REACTIONS (6)
  - Muscle spasms [None]
  - Haemorrhage [None]
  - Pain [None]
  - Gait disturbance [None]
  - Syncope [None]
  - Paralysis [None]

NARRATIVE: CASE EVENT DATE: 20221205
